FAERS Safety Report 9898934 (Version 1)
Quarter: 2014Q1

REPORT INFORMATION
  Report Type: Spontaneous
  Country: US (occurrence: US)
  Receive Date: 20140214
  Receipt Date: 20140214
  Transmission Date: 20141002
  Serious: Yes (Hospitalization, Other)
  Sender: FDA-Public Use
  Company Number: US-ELI_LILLY_AND_COMPANY-US201402002020

PATIENT
  Sex: Female

DRUGS (3)
  1. HUMALOG LISPRO [Suspect]
     Indication: TYPE 2 DIABETES MELLITUS
     Dosage: 22 U, UNKNOWN
     Route: 065
     Dates: start: 2012
  2. FLECAINIDE [Concomitant]
     Indication: ATRIAL FIBRILLATION
     Dosage: UNK
  3. POTASSIUM [Concomitant]

REACTIONS (4)
  - Atrial fibrillation [Unknown]
  - Blood glucose fluctuation [Unknown]
  - Visual acuity reduced [Not Recovered/Not Resolved]
  - Stress [Unknown]
